FAERS Safety Report 11639164 (Version 3)
Quarter: 2016Q1

REPORT INFORMATION
  Report Type: Spontaneous
  Country: US (occurrence: US)
  Receive Date: 20151019
  Receipt Date: 20160217
  Transmission Date: 20160525
  Serious: Yes (Other)
  Sender: FDA-Public Use
  Company Number: US-AUROBINDO-AUR-APL-2015-09282

PATIENT
  Age: 3 Year
  Sex: Male

DRUGS (1)
  1. ONDANSETRON. [Suspect]
     Active Substance: ONDANSETRON
     Indication: PRODUCT USED FOR UNKNOWN INDICATION
     Dosage: 2 MG, UNK
     Route: 042

REACTIONS (4)
  - Oculogyric crisis [Recovered/Resolved]
  - Abnormal behaviour [Recovered/Resolved]
  - Nystagmus [Recovered/Resolved]
  - Anxiety [Recovered/Resolved]
